FAERS Safety Report 23071449 (Version 1)
Quarter: 2023Q4

REPORT INFORMATION
  Report Type: Spontaneous
  Country: US (occurrence: None)
  Receive Date: 20231017
  Receipt Date: 20231017
  Transmission Date: 20240109
  Serious: No
  Sender: FDA-Public Use
  Company Number: 2023A228990

PATIENT

DRUGS (1)
  1. BYDUREON BCISE [Suspect]
     Active Substance: EXENATIDE

REACTIONS (6)
  - Sinusitis [Unknown]
  - Pyrexia [Unknown]
  - Illness [Unknown]
  - Blood glucose increased [Unknown]
  - Malaise [Unknown]
  - Extra dose administered [Unknown]
